FAERS Safety Report 14416887 (Version 1)
Quarter: 2018Q1

REPORT INFORMATION
  Report Type: Spontaneous
  Country: US (occurrence: US)
  Receive Date: 20180122
  Receipt Date: 20180122
  Transmission Date: 20180509
  Serious: No
  Sender: FDA-Public Use
  Company Number: US-PFIZER INC-2016494561

PATIENT
  Age: 82 Year
  Sex: Female
  Weight: 73.94 kg

DRUGS (16)
  1. TRICOR [Concomitant]
     Active Substance: FENOFIBRATE
     Dosage: 145 MG, 1X/DAY
     Route: 048
  2. ANUSOL-HC [Concomitant]
     Dosage: 25 MG, AS NEEDED (1 SUPP(S) RECTALLY 2 TIMES A DAY)
     Route: 054
     Dates: start: 20160510
  3. VOLTAREN [Concomitant]
     Active Substance: DICLOFENAC SODIUM
     Dosage: 2 G, AS NEEDED (4 TIMES A DAY)
     Route: 061
  4. LYRICA [Suspect]
     Active Substance: PREGABALIN
     Indication: NERVE INJURY
     Dosage: 50 MG, 1X/DAY (QHS 90DAYS)
     Route: 048
  5. LYRICA [Suspect]
     Active Substance: PREGABALIN
     Dosage: 50 MG, UNK (CAPSULE AT NIGHT)
     Route: 048
  6. MELOXICAM. [Concomitant]
     Active Substance: MELOXICAM
     Dosage: 7.5 MG, 1X/DAY
     Route: 048
  7. FLUCONAZOLE. [Concomitant]
     Active Substance: FLUCONAZOLE
     Dosage: 150 MG, WEEKLY
     Route: 048
     Dates: start: 20160921
  8. LOSARTAN. [Concomitant]
     Active Substance: LOSARTAN
     Dosage: 25 MG, 1X/DAY
     Route: 048
  9. FLUTICASONE. [Concomitant]
     Active Substance: FLUTICASONE
     Dosage: UNK, 1X/DAY (2 SPRAY(S) INTRA NASALLY)
     Route: 045
  10. ZOSTAVAX [Concomitant]
     Active Substance: VARICELLA-ZOSTER VIRUS STRAIN OKA/MERCK LIVE ANTIGEN
     Dosage: 1 ML, SINGLE
     Route: 058
     Dates: start: 20160609
  11. PROCTOSOL-HC [Concomitant]
     Active Substance: HYDROCORTISONE
     Dosage: 2.5 %, AS NEEDED (1 APP APPLIED TOPICALLY TID)
     Route: 061
     Dates: start: 20160215
  12. LYRICA [Suspect]
     Active Substance: PREGABALIN
     Indication: NEUROPATHY PERIPHERAL
     Dosage: 50 MG, 1X/DAY (AT NIGHTLY)
     Route: 048
  13. BIOFLEXOR [Concomitant]
     Active Substance: MENTHOL
     Dosage: UNK (AS DIRECTED TOPICALLY AS DIRECTED)
     Route: 061
     Dates: start: 20150127
  14. LOPID [Concomitant]
     Active Substance: GEMFIBROZIL
     Dosage: 600 MG, 2X/DAY
     Route: 048
     Dates: start: 20161115
  15. PNEUMOVAX 23 [Concomitant]
     Active Substance: PNEUMOCOCCAL VACCINE, POLYVALENT 23
     Dosage: 1 ML, SINGLE
     Route: 030
     Dates: start: 20160609
  16. LEVOTHYROXINE. [Concomitant]
     Active Substance: LEVOTHYROXINE
     Dosage: 25 UG, 1X/DAY
     Route: 048

REACTIONS (7)
  - Cough [Unknown]
  - Weight decreased [Unknown]
  - Malaise [Recovering/Resolving]
  - Nausea [Unknown]
  - Vomiting [Recovering/Resolving]
  - Bronchitis [Unknown]
  - Expired product administered [Unknown]

NARRATIVE: CASE EVENT DATE: 20180108
